FAERS Safety Report 6545919-0 (Version None)
Quarter: 2010Q1

REPORT INFORMATION
  Report Type: 
  Country: None (occurrence: None)
  Receive Date: 20100121
  Receipt Date: 20100111
  Transmission Date: 20100710
  Serious: Yes (Death)
  Sender: FDA-Public Use
  Company Number: TW-BAXTER-2009BH019515

PATIENT
  Age: 72 Year
  Sex: Female

DRUGS (3)
  1. DIANEAL [Suspect]
     Indication: PERITONEAL DIALYSIS
     Route: 033
     Dates: start: 20091201
  2. DIANEAL [Suspect]
     Route: 033
     Dates: start: 20091201
  3. DIANEAL [Suspect]
     Route: 033
     Dates: start: 20091201

REACTIONS (2)
  - MYOCARDIAL INFARCTION [None]
  - SEPSIS [None]
